FAERS Safety Report 6300105-4 (Version None)
Quarter: 2009Q3

REPORT INFORMATION
  Report Type: 
  Country: None (occurrence: None)
  Receive Date: 20090805
  Receipt Date: 20090805
  Transmission Date: 20100115
  Serious: No
  Sender: FDA-Public Use
  Company Number: None

PATIENT
  Age: 67 Year
  Sex: Female
  Weight: 62.1428 kg

DRUGS (2)
  1. BUPROPION HCL [Suspect]
     Indication: SEASONAL AFFECTIVE DISORDER
     Dosage: 1 TABLET TWICE A DAY PO
     Route: 048
  2. WELLBUTRIN SR [Suspect]

REACTIONS (6)
  - ANXIETY [None]
  - PALPITATIONS [None]
  - PRESYNCOPE [None]
  - PRODUCT SUBSTITUTION ISSUE [None]
  - PRURITUS [None]
  - URTICARIA [None]
